FAERS Safety Report 19597196 (Version 2)
Quarter: 2021Q4

REPORT INFORMATION
  Report Type: Spontaneous
  Country: US (occurrence: US)
  Receive Date: 20210722
  Receipt Date: 20211012
  Transmission Date: 20220304
  Serious: No
  Sender: FDA-Public Use
  Company Number: US-PFIZER INC-2021517022

PATIENT
  Age: 68 Year
  Sex: Male

DRUGS (2)
  1. INLYTA [Suspect]
     Active Substance: AXITINIB
     Dosage: 5 MG
     Dates: start: 20210410
  2. INLYTA [Suspect]
     Active Substance: AXITINIB
     Dosage: 5 MG, DAILY
     Dates: start: 20210421

REACTIONS (2)
  - Somnolence [Unknown]
  - Cough [Unknown]
